FAERS Safety Report 16115067 (Version 1)
Quarter: 2019Q1

REPORT INFORMATION
  Report Type: Spontaneous
  Country: US (occurrence: US)
  Receive Date: 20190325
  Receipt Date: 20190325
  Transmission Date: 20190418
  Serious: No
  Sender: FDA-Public Use
  Company Number: US-SMITH AND NEPHEW, INC-2018SMT00165

PATIENT
  Age: 100 Year
  Sex: Female
  Weight: 40.82 kg

DRUGS (2)
  1. COLLAGENASE SANTYL [Suspect]
     Active Substance: COLLAGENASE CLOSTRIDIUM HISTOLYTICUM
     Indication: DECUBITUS ULCER
     Dosage: ^SMALL AMOUNT,^ 3X/WEEK (TUESDAY, THURSDAY AND SATURDAY)
     Route: 061
     Dates: start: 201811, end: 20181202
  2. COLLAGENASE SANTYL [Suspect]
     Active Substance: COLLAGENASE CLOSTRIDIUM HISTOLYTICUM
     Dosage: ^SMALL AMOUNT,^ 3X/WEEK (TUESDAY, THURSDAY AND SATURDAY)
     Route: 061
     Dates: start: 201812

REACTIONS (4)
  - Underdose [Recovered/Resolved]
  - Drug ineffective [Recovering/Resolving]
  - Impaired healing [Not Recovered/Not Resolved]
  - Wound complication [Recovering/Resolving]

NARRATIVE: CASE EVENT DATE: 201811
